FAERS Safety Report 5829812-4 (Version None)
Quarter: 2008Q3

REPORT INFORMATION
  Report Type: 
  Country: None (occurrence: None)
  Receive Date: 20080801
  Receipt Date: 20080801
  Transmission Date: 20090109
  Serious: Yes (Death)
  Sender: FDA-Public Use
  Company Number: None

PATIENT
  Age: 67 Year
  Sex: Female
  Weight: 68.0396 kg

DRUGS (2)
  1. HEPARIN [Suspect]
     Indication: COLON CANCER
     Dates: start: 20020901, end: 20021118
  2. HEPARIN [Suspect]
     Indication: INTESTINAL OPERATION
     Dates: start: 20020901, end: 20021118

REACTIONS (3)
  - AORTIC THROMBOSIS [None]
  - GASTROINTESTINAL DISORDER [None]
  - THROMBOSIS [None]
